FAERS Safety Report 15430594 (Version 1)
Quarter: 2018Q3

REPORT INFORMATION
  Report Type: Spontaneous
  Country: CH (occurrence: CH)
  Receive Date: 20180926
  Receipt Date: 20180926
  Transmission Date: 20181010
  Serious: Yes (Hospitalization, Other)
  Sender: FDA-Public Use
  Company Number: CH-BAYER-2018-096016

PATIENT
  Age: 85 Year
  Sex: Male
  Weight: 62 kg

DRUGS (13)
  1. VALSARTAN. [Concomitant]
     Active Substance: VALSARTAN
     Dosage: 160 MG 0.5?0?0?0
  2. ASPIRIN. [Concomitant]
     Active Substance: ASPIRIN
  3. XOFIGO [Suspect]
     Active Substance: RADIUM RA-223 DICHLORIDE
     Indication: PROSTATE CANCER METASTATIC
     Dosage: UNK
  4. NOVALGIN [Concomitant]
     Dosage: 500 MG, TID 1?1?1
  5. PRIMPERAN [Concomitant]
     Active Substance: METOCLOPRAMIDE HYDROCHLORIDE
     Dosage: 10 MG
  6. ZOFRAN [Concomitant]
     Active Substance: ONDANSETRON HYDROCHLORIDE
     Dosage: 4 MG
  7. CONDROSULF [Concomitant]
     Active Substance: SODIUM CHONDROITIN SULFATE
     Dosage: 800 MG
  8. XOFIGO [Suspect]
     Active Substance: RADIUM RA-223 DICHLORIDE
     Indication: PROSTATE CANCER METASTATIC
     Dosage: UNK
     Dates: start: 20180105, end: 20180105
  9. XOFIGO [Suspect]
     Active Substance: RADIUM RA-223 DICHLORIDE
     Indication: PROSTATE CANCER METASTATIC
     Dosage: UNK
  10. TORASEMID [Concomitant]
     Active Substance: TORSEMIDE
  11. CALCIMAGON [Concomitant]
     Active Substance: CALCIUM
     Dosage: 1?0?0?0
  12. XOFIGO [Suspect]
     Active Substance: RADIUM RA-223 DICHLORIDE
     Indication: PROSTATE CANCER METASTATIC
     Dosage: UNK
     Dates: start: 20180418, end: 20180418
  13. TORASEMID [Concomitant]
     Active Substance: TORSEMIDE
     Dosage: 5 MG 1?0?0?0

REACTIONS (4)
  - Dyspnoea [Recovering/Resolving]
  - Pancytopenia [None]
  - Dizziness [Recovered/Resolved]
  - Hyponatraemia [Recovered/Resolved]
